FAERS Safety Report 9643192 (Version 1)
Quarter: 2013Q4

REPORT INFORMATION
  Report Type: Spontaneous
  Country: US (occurrence: US)
  Receive Date: 20131024
  Receipt Date: 20131024
  Transmission Date: 20140711
  Serious: No
  Sender: FDA-Public Use
  Company Number: US-GLAXOSMITHKLINE-A1011435A

PATIENT
  Age: 15 Year
  Sex: Female

DRUGS (4)
  1. DUAC [Suspect]
     Indication: ACNE
     Route: 061
     Dates: start: 2010
  2. DIFFERIN [Suspect]
     Indication: ACNE
     Route: 061
     Dates: start: 2010, end: 2012
  3. CETAPHIL MOISTURIZING LOTION [Suspect]
     Indication: DRY SKIN
     Route: 061
     Dates: start: 2010, end: 20130114
  4. DIFFERIN CREAM [Suspect]
     Indication: ACNE
     Route: 061

REACTIONS (4)
  - Burning sensation [Recovering/Resolving]
  - Sunburn [Unknown]
  - Dry skin [Unknown]
  - Skin exfoliation [Unknown]
